FAERS Safety Report 4757121-3 (Version None)
Quarter: 2005Q3

REPORT INFORMATION
  Report Type: 
  Country: None (occurrence: None)
  Receive Date: 20050829
  Receipt Date: 20050818
  Transmission Date: 20060218
  Serious: Yes (Other)
  Sender: FDA-Public Use
  Company Number: 217030

PATIENT
  Sex: Male
  Weight: 108 kg

DRUGS (4)
  1. MABTHERA (RITUXIMAB) CONC FOR SOLUTION FOR INFUSION [Suspect]
     Indication: CHRONIC LYMPHOCYTIC LEUKAEMIA
  2. FLUDARABINE PHOSPHATE [Suspect]
     Indication: CHRONIC LYMPHOCYTIC LEUKAEMIA
  3. CYCLOPHOSPHAMIDE [Suspect]
     Indication: CHRONIC LYMPHOCYTIC LEUKAEMIA
  4. COTRIM FORTE (SULFAMETHOXAZOLE, TRIMETHOPRIM) [Suspect]

REACTIONS (4)
  - BONE MARROW DEPRESSION [None]
  - LEUKOPENIA [None]
  - PLATELET COUNT DECREASED [None]
  - VIRAL INFECTION [None]
